FAERS Safety Report 6385511-4 (Version None)
Quarter: 2009Q4

REPORT INFORMATION
  Report Type: 
  Country: None (occurrence: None)
  Receive Date: 20091002
  Receipt Date: 20080924
  Transmission Date: 20100525
  Serious: No
  Sender: FDA-Public Use
  Company Number: US-ASTRAZENECA-2008UW20155

PATIENT
  Age: 84 Year
  Sex: Female

DRUGS (7)
  1. ARIMIDEX [Suspect]
     Route: 048
     Dates: start: 20050101
  2. NEXIUM [Concomitant]
     Route: 048
  3. WELLBUTRIN [Concomitant]
  4. XANAX [Concomitant]
  5. ASPIRIN [Concomitant]
  6. LIPITOR [Concomitant]
  7. DESERIL [Concomitant]
     Dates: end: 20060606

REACTIONS (5)
  - ARTHRITIS [None]
  - DEPRESSION [None]
  - FALL [None]
  - GAIT DISTURBANCE [None]
  - INSOMNIA [None]
